FAERS Safety Report 13150510 (Version 1)
Quarter: 2017Q1

REPORT INFORMATION
  Report Type: Spontaneous
  Country: JP (occurrence: JP)
  Receive Date: 20170125
  Receipt Date: 20170125
  Transmission Date: 20170428
  Serious: Yes (Other)
  Sender: FDA-Public Use
  Company Number: JP-PFIZER INC-2017029696

PATIENT
  Age: 7 Decade
  Sex: Female

DRUGS (14)
  1. 5-FU [Suspect]
     Active Substance: FLUOROURACIL
     Dosage: 100 MG, UNK
     Route: 013
  2. DACARBAZINE. [Suspect]
     Active Substance: DACARBAZINE
     Indication: MALIGNANT MELANOMA
     Dosage: 100 MG, UNK
     Route: 042
     Dates: start: 2009
  3. NIMUSTINE HYDROCHLORIDE [Suspect]
     Active Substance: NIMUSTINE HYDROCHLORIDE
     Dosage: UNK
     Route: 042
     Dates: start: 200909, end: 201002
  4. BEVACIZUMAB [Suspect]
     Active Substance: BEVACIZUMAB
     Indication: METASTASES TO LIVER
     Route: 013
  5. IFOSFAMIDE. [Suspect]
     Active Substance: IFOSFAMIDE
     Indication: METASTASES TO LIVER
  6. 5-FU [Suspect]
     Active Substance: FLUOROURACIL
     Indication: METASTASES TO LIVER
     Dosage: 400 MG, UNK
     Route: 013
  7. MITOMYCIN C [Suspect]
     Active Substance: MITOMYCIN
     Indication: METASTASES TO LIVER
     Route: 013
  8. VINCRISTINE SULFATE. [Suspect]
     Active Substance: VINCRISTINE SULFATE
     Dosage: UNK
     Route: 042
     Dates: start: 200909, end: 201002
  9. CISPLATIN. [Suspect]
     Active Substance: CISPLATIN
     Indication: METASTASES TO LIVER
     Dosage: 50 MG, UNK
     Route: 013
  10. DACARBAZINE. [Suspect]
     Active Substance: DACARBAZINE
     Dosage: 100 MG, UNK
     Dates: start: 200909, end: 201002
  11. NIMUSTINE HYDROCHLORIDE [Suspect]
     Active Substance: NIMUSTINE HYDROCHLORIDE
     Indication: MALIGNANT MELANOMA
     Dosage: UNK
     Dates: start: 2009
  12. VINCRISTINE SULFATE. [Suspect]
     Active Substance: VINCRISTINE SULFATE
     Dosage: UNK
     Route: 042
     Dates: start: 2009
  13. ADRIACIN [Suspect]
     Active Substance: DOXORUBICIN HYDROCHLORIDE
     Indication: METASTASES TO LIVER
     Dosage: UNK MG, UNK
     Route: 013
  14. DOCETAXEL. [Suspect]
     Active Substance: DOCETAXEL
     Indication: METASTASES TO LIVER
     Route: 013

REACTIONS (4)
  - Nausea [Unknown]
  - Hepatic function abnormal [Unknown]
  - Platelet count decreased [Unknown]
  - Necrosis [Unknown]
